FAERS Safety Report 4268595-9 (Version None)
Quarter: 2004Q1

REPORT INFORMATION
  Report Type: 
  Country: None (occurrence: None)
  Receive Date: 20040109
  Receipt Date: 20040109
  Transmission Date: 20041129
  Serious: No
  Sender: FDA-Public Use
  Company Number: None

PATIENT
  Age: 44 Year
  Sex: Female

DRUGS (1)
  1. PAROXETINE [Suspect]
     Indication: DEPRESSION

REACTIONS (3)
  - DIZZINESS [None]
  - LIBIDO DECREASED [None]
  - PHARMACEUTICAL PRODUCT COMPLAINT [None]
